FAERS Safety Report 15300083 (Version 1)
Quarter: 2018Q3

REPORT INFORMATION
  Report Type: Spontaneous
  Country: US (occurrence: US)
  Receive Date: 20180821
  Receipt Date: 20180821
  Transmission Date: 20181010
  Serious: No
  Sender: FDA-Public Use
  Company Number: US-PFIZER INC-2018335249

PATIENT
  Age: 58 Year
  Sex: Male

DRUGS (2)
  1. PREGABALIN. [Suspect]
     Active Substance: PREGABALIN
     Dosage: 600 MG, UNK
  2. PREGABALIN. [Suspect]
     Active Substance: PREGABALIN
     Indication: DEPRESSION
     Dosage: 1200?1500 MG EVERY 2?3 WEEKS

REACTIONS (6)
  - Drug ineffective for unapproved indication [Unknown]
  - Myoclonus [Unknown]
  - Euphoric mood [Unknown]
  - Constipation [Unknown]
  - Dysarthria [Unknown]
  - Oedema [Unknown]
